FAERS Safety Report 8444724-8 (Version None)
Quarter: 2012Q2

REPORT INFORMATION
  Report Type: 
  Country: None (occurrence: None)
  Receive Date: 20120323
  Receipt Date: 20110927
  Transmission Date: 20120825
  Serious: Yes (Hospitalization, Other)
  Sender: FDA-Public Use
  Company Number: 163-21880-11082319

PATIENT
  Age: 54 Year
  Sex: Male
  Weight: 91 kg

DRUGS (3)
  1. REVLIMID [Suspect]
     Indication: DIFFUSE LARGE B-CELL LYMPHOMA
     Dosage: 5 MG, 1 IN 2 D, PO
     Route: 048
     Dates: start: 20110404
  2. REVLIMID [Suspect]
     Indication: LYMPHOMA
     Dosage: 5 MG, 1 IN 2 D, PO
     Route: 048
     Dates: start: 20110404
  3. ORFORTA (FLUDARABINE PHOSPHATE) (10 MILLIGRAM, TABLETS) [Concomitant]

REACTIONS (4)
  - NEUTROPHIL COUNT DECREASED [None]
  - NEUTROPENIC SEPSIS [None]
  - PYREXIA [None]
  - CLOSTRIDIAL INFECTION [None]
